FAERS Safety Report 17229003 (Version 1)
Quarter: 2020Q1

REPORT INFORMATION
  Report Type: Report from Study
  Country: MX (occurrence: MX)
  Receive Date: 20200103
  Receipt Date: 20200103
  Transmission Date: 20200409
  Serious: Yes (Death, Other)
  Sender: FDA-Public Use
  Company Number: MX-BRISTOL-MYERS SQUIBB COMPANY-BMS-2019-125737

PATIENT
  Age: 57 Year
  Sex: Female

DRUGS (1)
  1. NIVOLUMAB [Suspect]
     Active Substance: NIVOLUMAB
     Indication: RENAL CANCER
     Dosage: 192 MILLIGRAM, Q2WK
     Route: 042
     Dates: start: 20190828, end: 20190901

REACTIONS (1)
  - Death [Fatal]

NARRATIVE: CASE EVENT DATE: 20190911
